FAERS Safety Report 7640951-8 (Version None)
Quarter: 2011Q3

REPORT INFORMATION
  Report Type: 
  Country: None (occurrence: None)
  Receive Date: 20110721
  Receipt Date: 20110712
  Transmission Date: 20111222
  Serious: Yes (Death, Hospitalization, Other)
  Sender: FDA-Public Use
  Company Number: WAES 1106USA04373

PATIENT
  Age: 71 Year
  Sex: Male

DRUGS (11)
  1. LANSOYL [Concomitant]
  2. CAP VORINOSTAT [Suspect]
     Indication: MULTIPLE MYELOMA
     Dosage: 300 MG, DAILY, PO
     Route: 048
     Dates: start: 20100820, end: 20110620
  3. OXYCODONE HCL [Concomitant]
  4. OXYGEN [Concomitant]
  5. LOPERAMIDE HCL [Concomitant]
  6. SODIUM CHLORIDE [Concomitant]
  7. PROCHLORPERAZINE [Concomitant]
  8. OVOL [Concomitant]
  9. OXYCONTIN [Concomitant]
  10. PAMIDRONATE DISODIUM [Concomitant]
  11. METAMUCIL-2 [Concomitant]

REACTIONS (5)
  - GENERAL PHYSICAL HEALTH DETERIORATION [None]
  - NEOPLASM PROGRESSION [None]
  - MULTIPLE MYELOMA [None]
  - RESPIRATORY TRACT INFECTION [None]
  - IMMUNE SYSTEM DISORDER [None]
